FAERS Safety Report 5614003-2 (Version None)
Quarter: 2008Q1

REPORT INFORMATION
  Report Type: 
  Country: None (occurrence: None)
  Receive Date: 20080205
  Receipt Date: 20080129
  Transmission Date: 20080703
  Serious: Yes (Hospitalization)
  Sender: FDA-Public Use
  Company Number: FR-ROCHE-459186

PATIENT
  Age: 61 Year
  Sex: Female
  Weight: 69 kg

DRUGS (6)
  1. PEG-INTERFERON A-2A (RO 25-8310) [Suspect]
     Route: 058
     Dates: start: 20060428, end: 20060801
  2. RIBAVIRIN [Suspect]
     Route: 048
     Dates: start: 20060428, end: 20060801
  3. BLINDED THYMOSIN ALFA 1 [Suspect]
     Route: 058
     Dates: start: 20060428, end: 20060801
  4. AMARYL [Concomitant]
     Dates: start: 20040601
  5. AVANDIA [Concomitant]
     Dosage: ROSIGLITAZONE MALEATE
     Dates: start: 20040601
  6. MODURETIC 5-50 [Concomitant]
     Dosage: HYDROCHLOROTHIAZIDE/ AMILORIDE HYDROCHLORIDE
     Dates: start: 20050601

REACTIONS (1)
  - PNEUMONIA CRYPTOCOCCAL [None]
